FAERS Safety Report 22905023 (Version 3)
Quarter: 2024Q3

REPORT INFORMATION
  Report Type: Spontaneous
  Country: NL (occurrence: NL)
  Receive Date: 20230905
  Receipt Date: 20240724
  Transmission Date: 20241016
  Serious: Yes (Death, Other)
  Sender: AUROBINDO
  Company Number: NL-SANDOZ-SDZ2023NL014595

PATIENT
  Sex: Male
  Weight: 1.59 kg

DRUGS (6)
  1. AMOXICILLIN\CLAVULANIC ACID [Suspect]
     Active Substance: AMOXICILLIN\CLAVULANIC ACID
     Indication: Product used for unknown indication
     Dosage: UNK (APPROXIMATELY 1 HOUR PRIOR TO DELIVERY) (MATERNAL EXPOSURE DURING PREGNANCY)
     Route: 064
  2. BETAMETHASONE [Suspect]
     Active Substance: BETAMETHASONE\BETAMETHASONE DIPROPIONATE
     Indication: Maternal therapy to enhance foetal lung maturity
     Dosage: UNK
     Route: 064
  3. BETAMETHASONE [Suspect]
     Active Substance: BETAMETHASONE\BETAMETHASONE DIPROPIONATE
     Indication: Foetal exposure during pregnancy
  4. NOREPINEPHRINE [Concomitant]
     Active Substance: NOREPINEPHRINE\NOREPINEPHRINE BITARTRATE
     Indication: Product used for unknown indication
     Dosage: UNK
     Route: 065
  5. EPINEPHRINE [Concomitant]
     Active Substance: EPINEPHRINE
     Indication: Product used for unknown indication
     Dosage: UNK (TWO DOSES)
     Route: 065
  6. NITRIC OXIDE [Concomitant]
     Active Substance: NITRIC OXIDE
     Indication: Product used for unknown indication
     Dosage: UNK
     Route: 065

REACTIONS (10)
  - Meningococcal sepsis [Fatal]
  - Neonatal respiratory acidosis [Fatal]
  - Neonatal respiratory distress syndrome [Fatal]
  - Metabolic acidosis [Fatal]
  - Pulmonary hypertension [Fatal]
  - Bradycardia [Fatal]
  - Coagulopathy [Fatal]
  - Low birth weight baby [Unknown]
  - Foetal exposure during delivery [Unknown]
  - Apgar score low [Unknown]
